FAERS Safety Report 7042774-X (Version None)
Quarter: 2010Q4

REPORT INFORMATION
  Report Type: 
  Country: None (occurrence: None)
  Receive Date: 20101013
  Receipt Date: 20100113
  Transmission Date: 20110411
  Serious: No
  Sender: FDA-Public Use
  Company Number: US-ASTRAZENECA-2010SE01538

PATIENT
  Age: 50 Year
  Sex: Female

DRUGS (9)
  1. SYMBICORT [Suspect]
     Dosage: 80/4.5 MCG
     Route: 055
     Dates: start: 20090101
  2. METHOTREXATE [Concomitant]
  3. ESTROPIPATE [Concomitant]
  4. OMEPRAZOLE [Concomitant]
  5. BACLOFEN [Concomitant]
  6. TOPIRAMATE [Concomitant]
  7. BUSPIRONE HCL [Concomitant]
  8. SAVELLA [Concomitant]
  9. TRAZODONE HCL [Concomitant]

REACTIONS (4)
  - ALOPECIA [None]
  - BLADDER DISORDER [None]
  - DIARRHOEA [None]
  - RHEUMATOID ARTHRITIS [None]
